FAERS Safety Report 8994858 (Version 1)
Quarter: 2013Q1

REPORT INFORMATION
  Report Type: Spontaneous
  Country: US (occurrence: US)
  Receive Date: 20130102
  Receipt Date: 20130102
  Transmission Date: 20140127
  Serious: No
  Sender: FDA-Public Use
  Company Number: US-AMGEN-USASP2012078626

PATIENT
  Age: 80 Year
  Sex: Female

DRUGS (1)
  1. ENBREL [Suspect]
     Indication: RHEUMATOID ARTHRITIS
     Dosage: 50 MG, QWK
     Dates: start: 20090504

REACTIONS (4)
  - Seasonal allergy [Not Recovered/Not Resolved]
  - Glassy eyes [Not Recovered/Not Resolved]
  - Eye pruritus [Not Recovered/Not Resolved]
  - Vision blurred [Not Recovered/Not Resolved]
